FAERS Safety Report 20356169 (Version 4)
Quarter: 2022Q1

REPORT INFORMATION
  Report Type: Report from Study
  Country: US (occurrence: US)
  Receive Date: 20220120
  Receipt Date: 20220315
  Transmission Date: 20220424
  Serious: Yes (Other)
  Sender: FDA-Public Use
  Company Number: NVSC2022US011245

PATIENT
  Sex: Male

DRUGS (1)
  1. ENTRESTO [Suspect]
     Active Substance: SACUBITRIL\VALSARTAN
     Indication: Product used for unknown indication
     Dosage: UNK UNK, BID
     Route: 048
     Dates: start: 202112

REACTIONS (8)
  - Deafness unilateral [Unknown]
  - Mouth breathing [Unknown]
  - Throat clearing [Unknown]
  - Confusional state [Unknown]
  - Tearfulness [Unknown]
  - Blood pressure systolic increased [Unknown]
  - Ejection fraction decreased [Unknown]
  - Dizziness [Not Recovered/Not Resolved]
